FAERS Safety Report 16923902 (Version 2)
Quarter: 2019Q4

REPORT INFORMATION
  Report Type: Spontaneous
  Country: IL (occurrence: IL)
  Receive Date: 20191016
  Receipt Date: 20191101
  Transmission Date: 20200122
  Serious: Yes (Other)
  Sender: FDA-Public Use
  Company Number: NVSC2019IL001801

PATIENT
  Age: 72 Year
  Sex: Male

DRUGS (12)
  1. PEMETREXED. [Suspect]
     Active Substance: PEMETREXED
     Indication: METASTASES TO LYMPH NODES
  2. PEMETREXED. [Suspect]
     Active Substance: PEMETREXED
     Indication: MALIGNANT PLEURAL EFFUSION
  3. CARBOPLATIN. [Suspect]
     Active Substance: CARBOPLATIN
     Indication: LUNG CANCER METASTATIC
     Dosage: UNK
     Route: 065
  4. KEYTRUDA [Suspect]
     Active Substance: PEMBROLIZUMAB
     Indication: METASTASES TO ADRENALS
  5. CARBOPLATIN. [Suspect]
     Active Substance: CARBOPLATIN
     Indication: METASTASES TO ADRENALS
  6. CARBOPLATIN. [Suspect]
     Active Substance: CARBOPLATIN
     Indication: METASTASES TO LYMPH NODES
  7. CARBOPLATIN. [Suspect]
     Active Substance: CARBOPLATIN
     Indication: MALIGNANT PLEURAL EFFUSION
  8. KEYTRUDA [Suspect]
     Active Substance: PEMBROLIZUMAB
     Indication: MALIGNANT PLEURAL EFFUSION
  9. PEMETREXED. [Suspect]
     Active Substance: PEMETREXED
     Indication: LUNG CANCER METASTATIC
     Dosage: 200 MG, Q3W
     Route: 042
     Dates: start: 201804, end: 201908
  10. PEMETREXED. [Suspect]
     Active Substance: PEMETREXED
     Indication: METASTASES TO ADRENALS
  11. KEYTRUDA [Suspect]
     Active Substance: PEMBROLIZUMAB
     Indication: METASTASES TO LYMPH NODES
  12. KEYTRUDA [Suspect]
     Active Substance: PEMBROLIZUMAB
     Indication: LUNG CANCER METASTATIC
     Dosage: UNK
     Route: 065

REACTIONS (3)
  - Lung cancer metastatic [Recovering/Resolving]
  - Malignant neoplasm progression [Recovering/Resolving]
  - Pneumonitis [Unknown]

NARRATIVE: CASE EVENT DATE: 201909
